FAERS Safety Report 6817637-2 (Version None)
Quarter: 2010Q3

REPORT INFORMATION
  Report Type: 
  Country: None (occurrence: None)
  Receive Date: 20100706
  Receipt Date: 20100621
  Transmission Date: 20110219
  Serious: No
  Sender: FDA-Public Use
  Company Number: US-B.I. PHARMACEUTICALS,INC./RIDGEFIELD-2010-BP-06317BP

PATIENT
  Sex: Male

DRUGS (7)
  1. SPIRIVA [Suspect]
     Indication: CHRONIC OBSTRUCTIVE PULMONARY DISEASE
     Dosage: 18 MCG
     Route: 055
     Dates: start: 20100401, end: 20100501
  2. DIOVAN [Concomitant]
     Indication: CAROTID ARTERY OCCLUSION
  3. IMDUR [Concomitant]
     Indication: CAROTID ARTERY OCCLUSION
  4. METOPROLOL TARTRATE [Concomitant]
     Indication: CAROTID ARTERY OCCLUSION
  5. WARFARIN [Concomitant]
     Indication: CAROTID ARTERY OCCLUSION
  6. PRAVACHOL [Concomitant]
     Indication: CAROTID ARTERY OCCLUSION
  7. SAW PALMETTO [Concomitant]
     Indication: PROSTATIC DISORDER

REACTIONS (3)
  - DRY MOUTH [None]
  - DYSGEUSIA [None]
  - VISION BLURRED [None]
